FAERS Safety Report 22257585 (Version 5)
Quarter: 2024Q2

REPORT INFORMATION
  Report Type: Spontaneous
  Country: DE (occurrence: DE)
  Receive Date: 20230427
  Receipt Date: 20240528
  Transmission Date: 20240716
  Serious: Yes (Hospitalization, Other)
  Sender: FDA-Public Use
  Company Number: DE-ORGANON-O2304DEU002457

PATIENT
  Age: 37 Year
  Sex: Female

DRUGS (6)
  1. PROGESTERONE [Suspect]
     Active Substance: PROGESTERONE
     Indication: Assisted reproductive technology
     Dosage: UNK
     Route: 065
  2. FOLLITROPIN BETA [Suspect]
     Active Substance: FOLLITROPIN BETA
     Indication: Assisted reproductive technology
     Dosage: UNK
     Route: 065
  3. LUVERIS [Suspect]
     Active Substance: LUTROPIN ALFA
     Indication: Assisted reproductive technology
     Dosage: UNK
     Route: 065
  4. ESTRADIOL VALERATE [Suspect]
     Active Substance: ESTRADIOL VALERATE
     Indication: Assisted reproductive technology
     Dosage: UNK
     Route: 065
  5. GONADOTROPHIN, CHORIONIC [Suspect]
     Active Substance: GONADOTROPHIN, CHORIONIC
     Indication: Assisted reproductive technology
     Dosage: UNK
     Route: 065
  6. DECAPEPTYL (ACETATE) [Suspect]
     Active Substance: TRIPTORELIN ACETATE
     Indication: Assisted reproductive technology
     Dosage: UNK
     Route: 065

REACTIONS (6)
  - Ovarian hyperstimulation syndrome [Recovered/Resolved]
  - Pelvic fluid collection [Recovered/Resolved]
  - Waist circumference increased [Recovered/Resolved]
  - Pain [Recovered/Resolved]
  - Nausea [Recovered/Resolved]
  - Vomiting [Recovered/Resolved]

NARRATIVE: CASE EVENT DATE: 20230331
